FAERS Safety Report 23743492 (Version 1)
Quarter: 2024Q2

REPORT INFORMATION
  Report Type: Spontaneous
  Country: FR (occurrence: FR)
  Receive Date: 20240415
  Receipt Date: 20240415
  Transmission Date: 20240716
  Serious: Yes (Life-Threatening)
  Sender: FDA-Public Use
  Company Number: None

PATIENT
  Age: 53 Year
  Sex: Female
  Weight: 56 kg

DRUGS (1)
  1. ALPELISIB [Suspect]
     Active Substance: ALPELISIB
     Indication: Cytogenetic abnormality
     Dosage: 250 MG, QD
     Route: 048
     Dates: start: 20220127, end: 20240131

REACTIONS (2)
  - Insulin resistance [Recovered/Resolved]
  - Diabetic hyperosmolar coma [Recovered/Resolved]

NARRATIVE: CASE EVENT DATE: 20240327
